FAERS Safety Report 24091640 (Version 1)
Quarter: 2024Q3

REPORT INFORMATION
  Report Type: Spontaneous
  Country: FR (occurrence: FR)
  Receive Date: 20240715
  Receipt Date: 20240715
  Transmission Date: 20241017
  Serious: Yes (Hospitalization)
  Sender: MYLAN
  Company Number: None

PATIENT
  Age: 30 Year
  Sex: Female
  Weight: 50 kg

DRUGS (8)
  1. METHOTREXATE [Suspect]
     Active Substance: METHOTREXATE
     Indication: Psoriasis
     Dosage: 15 MILLIGRAM, QW
     Route: 065
     Dates: start: 201808, end: 20190808
  2. METHOTREXATE [Suspect]
     Active Substance: METHOTREXATE
     Dosage: 17.5 MILLIGRAM, QW
     Route: 065
     Dates: start: 20190124, end: 20190808
  3. HYRIMOZ [Suspect]
     Active Substance: ADALIMUMAB-ADAZ
     Indication: Psoriasis
     Dosage: 40 MILLIGRAM, Q2W (PRE-FILLED PEN)
     Route: 058
     Dates: start: 20190808, end: 202109
  4. SKYRIZI [Suspect]
     Active Substance: RISANKIZUMAB-RZAA
     Indication: Psoriasis
     Dosage: 150 MILLIGRAM, 1 TRIMESTER (PRE-FILLED PEN)
     Route: 058
     Dates: start: 20220818, end: 20230821
  5. BRODALUMAB [Suspect]
     Active Substance: BRODALUMAB
     Indication: Psoriasis
     Dosage: 210 MILLIGRAM, Q2W
     Route: 058
     Dates: start: 20230821, end: 20231227
  6. TALTZ [Suspect]
     Active Substance: IXEKIZUMAB
     Indication: Psoriasis
     Dosage: 80 MILLIGRAM, MONTHLY
     Route: 058
     Dates: start: 202109, end: 20220818
  7. DESOGESTREL [Concomitant]
     Active Substance: DESOGESTREL
     Indication: Hormonal contraception
     Dosage: 1 DOSAGE FORM, QD
     Route: 048
  8. ASCORBIC ACID\FERROUS SULFATE [Concomitant]
     Active Substance: ASCORBIC ACID\FERROUS SULFATE
     Indication: Mineral supplementation
     Dosage: 50 MILLIGRAM
     Route: 048

REACTIONS (1)
  - B-cell type acute leukaemia [Not Recovered/Not Resolved]

NARRATIVE: CASE EVENT DATE: 20231223
